FAERS Safety Report 10572503 (Version 3)
Quarter: 2018Q3

REPORT INFORMATION
  Report Type: Report from Study
  Country: US (occurrence: US)
  Receive Date: 20141110
  Receipt Date: 20180907
  Transmission Date: 20181010
  Serious: Yes (Hospitalization, Other)
  Sender: FDA-Public Use
  Company Number: US-ROCHE-1487110

PATIENT
  Age: 71 Year
  Sex: Female
  Weight: 87.8 kg

DRUGS (28)
  1. BEVACIZUMAB. [Suspect]
     Active Substance: BEVACIZUMAB
     Dosage: COURSE 2
     Route: 042
     Dates: start: 20100903
  2. BEVACIZUMAB. [Suspect]
     Active Substance: BEVACIZUMAB
     Dosage: COURSE 4
     Route: 042
     Dates: start: 20101014
  3. BEVACIZUMAB. [Suspect]
     Active Substance: BEVACIZUMAB
     Dosage: COURSE 8
     Route: 042
     Dates: start: 20110107
  4. BEVACIZUMAB. [Suspect]
     Active Substance: BEVACIZUMAB
     Dosage: COURSE 53
     Route: 042
     Dates: start: 20130930
  5. BEVACIZUMAB. [Suspect]
     Active Substance: BEVACIZUMAB
     Dosage: COURSE 13
     Route: 042
     Dates: start: 20110422
  6. BEVACIZUMAB. [Suspect]
     Active Substance: BEVACIZUMAB
     Dosage: COURSE 49
     Route: 042
     Dates: start: 20130617
  7. BEVACIZUMAB. [Suspect]
     Active Substance: BEVACIZUMAB
     Dosage: COURSE 48
     Route: 042
     Dates: start: 20130506
  8. BEVACIZUMAB. [Suspect]
     Active Substance: BEVACIZUMAB
     Dosage: COURSE 54
     Route: 042
     Dates: start: 20131023
  9. BEVACIZUMAB. [Suspect]
     Active Substance: BEVACIZUMAB
     Dosage: COURSE 56
     Route: 042
     Dates: start: 20131211
  10. PACLITAXEL. [Suspect]
     Active Substance: PACLITAXEL
     Indication: ENDOMETRIAL CANCER
     Route: 042
     Dates: start: 20100813
  11. CARBOPLATIN. [Suspect]
     Active Substance: CARBOPLATIN
     Indication: ENDOMETRIAL CANCER
     Dosage: AUC 6 IV OVER 30 MINUTES ON DAY 6 CYCLES
     Route: 042
     Dates: start: 20100813
  12. BEVACIZUMAB. [Suspect]
     Active Substance: BEVACIZUMAB
     Dosage: COURSE 38
     Route: 042
     Dates: start: 20120928
  13. BEVACIZUMAB. [Suspect]
     Active Substance: BEVACIZUMAB
     Dosage: COURSE 52
     Route: 042
     Dates: start: 20130819
  14. BEVACIZUMAB. [Suspect]
     Active Substance: BEVACIZUMAB
     Dosage: COURSE 57
     Route: 042
     Dates: start: 20140108
  15. BEVACIZUMAB. [Suspect]
     Active Substance: BEVACIZUMAB
     Dosage: COURSE 62
     Route: 042
     Dates: start: 20140516, end: 20140516
  16. BEVACIZUMAB. [Suspect]
     Active Substance: BEVACIZUMAB
     Dosage: COURSE 61
     Route: 042
     Dates: start: 20140425
  17. BEVACIZUMAB. [Suspect]
     Active Substance: BEVACIZUMAB
     Dosage: COURSE 5
     Route: 042
     Dates: start: 20101104
  18. BEVACIZUMAB. [Suspect]
     Active Substance: BEVACIZUMAB
     Dosage: COURSE 9
     Route: 042
     Dates: start: 20110128
  19. BEVACIZUMAB. [Suspect]
     Active Substance: BEVACIZUMAB
     Dosage: COURSE 55
     Route: 042
     Dates: start: 20131113
  20. BEVACIZUMAB. [Suspect]
     Active Substance: BEVACIZUMAB
     Dosage: COURSE 3
     Route: 042
     Dates: start: 20100924
  21. BEVACIZUMAB. [Suspect]
     Active Substance: BEVACIZUMAB
     Dosage: COURSE 6
     Route: 042
     Dates: start: 20101126
  22. BEVACIZUMAB. [Suspect]
     Active Substance: BEVACIZUMAB
     Dosage: COURSE 7
     Route: 042
     Dates: start: 20101217
  23. BEVACIZUMAB. [Suspect]
     Active Substance: BEVACIZUMAB
     Dosage: COURSE 19
     Route: 042
     Dates: start: 20110826
  24. BEVACIZUMAB. [Suspect]
     Active Substance: BEVACIZUMAB
     Dosage: COURSE 23
     Route: 042
     Dates: start: 20111118
  25. BEVACIZUMAB. [Suspect]
     Active Substance: BEVACIZUMAB
     Indication: ENDOMETRIAL CANCER
     Dosage: OVER 30 AND 90 MINUTES ON DAY 1 X 6 CYCLES, COURSE 1
     Route: 042
     Dates: start: 20100813
  26. BEVACIZUMAB. [Suspect]
     Active Substance: BEVACIZUMAB
     Dosage: COURSE 10
     Route: 042
     Dates: start: 20110218
  27. BEVACIZUMAB. [Suspect]
     Active Substance: BEVACIZUMAB
     Dosage: COURSE 11
     Route: 042
     Dates: start: 20110311
  28. BEVACIZUMAB. [Suspect]
     Active Substance: BEVACIZUMAB
     Dosage: COURSE 60
     Route: 042
     Dates: start: 20140404

REACTIONS (3)
  - Seizure [Recovered/Resolved]
  - Neutrophil count decreased [Unknown]
  - Hypertension [Recovered/Resolved]

NARRATIVE: CASE EVENT DATE: 20140614
